FAERS Safety Report 5587927-2 (Version None)
Quarter: 2008Q1

REPORT INFORMATION
  Report Type: 
  Country: None (occurrence: None)
  Receive Date: 20080111
  Receipt Date: 20070619
  Transmission Date: 20080703
  Serious: No
  Sender: FDA-Public Use
  Company Number: US-KINGPHARMUSA00001-K200700764

PATIENT

DRUGS (3)
  1. CORGARD [Suspect]
     Indication: HYPERTENSION
     Dosage: 60 MG, BID
     Route: 048
     Dates: start: 19690101
  2. CORGARD [Suspect]
     Dosage: 20 MG, BID
     Route: 048
  3. EYE DROPS [Concomitant]

REACTIONS (1)
  - FATIGUE [None]
